FAERS Safety Report 9725270 (Version 1)
Quarter: 2013Q4

REPORT INFORMATION
  Report Type: Spontaneous
  Country: US (occurrence: None)
  Receive Date: 20131202
  Receipt Date: 20131202
  Transmission Date: 20140711
  Serious: Yes (Disabling, Other)
  Sender: FDA-Public Use
  Company Number: None

PATIENT
  Age: 50 Year
  Sex: Female
  Weight: 62.6 kg

DRUGS (2)
  1. ALBUTEROL [Suspect]
     Indication: DYSPNOEA
     Dosage: 25 VIALS PER BOX, 3 BOXES
     Route: 048
     Dates: start: 20130910, end: 20131110
  2. SENOKOT-S [Concomitant]

REACTIONS (3)
  - Lung infection [None]
  - Respiratory failure [None]
  - Asthenia [None]
